FAERS Safety Report 12505696 (Version 3)
Quarter: 2016Q3

REPORT INFORMATION
  Report Type: Spontaneous
  Country: CA (occurrence: CA)
  Receive Date: 20160628
  Receipt Date: 20160728
  Transmission Date: 20161109
  Serious: Yes (Death, Other)
  Sender: FDA-Public Use
  Company Number: CA-APOTEX-2016AP009287

PATIENT
  Age: 66 Year
  Sex: Male

DRUGS (1)
  1. APO-ALLOPURINOL [Suspect]
     Active Substance: ALLOPURINOL
     Indication: GOUT
     Dosage: UNK, UNKNOWN
     Route: 065
     Dates: start: 20140303

REACTIONS (3)
  - Immune thrombocytopenic purpura [Fatal]
  - Drug reaction with eosinophilia and systemic symptoms [Fatal]
  - Peritonitis bacterial [Fatal]

NARRATIVE: CASE EVENT DATE: 201403
